FAERS Safety Report 6590254-8 (Version None)
Quarter: 2010Q1

REPORT INFORMATION
  Report Type: 
  Country: None (occurrence: None)
  Receive Date: 20100219
  Receipt Date: 20100208
  Transmission Date: 20100710
  Serious: Yes (Hospitalization)
  Sender: FDA-Public Use
  Company Number: PHEH2010US01846

PATIENT
  Sex: Female
  Weight: 66 kg

DRUGS (9)
  1. RECLAST [Suspect]
     Indication: OSTEOPOROSIS
     Dosage: 5 MG ONCE YEARLY
     Dates: start: 20091230
  2. LOTREL [Concomitant]
     Indication: HYPERTENSION
     Dosage: 10/20 MG DAILY
     Route: 048
  3. METOPROLOL TARTRATE [Concomitant]
     Indication: HYPERTENSION
     Dosage: 25 MG, BID
     Route: 048
  4. BUMETANIDE [Concomitant]
     Indication: OEDEMA PERIPHERAL
     Dosage: 1 MG DAILY
     Route: 048
  5. ASPIRIN [Concomitant]
     Indication: CORONARY ARTERY DISEASE
     Dosage: 81 MG DAILY
     Route: 048
  6. COUMADIN [Concomitant]
     Indication: ATRIAL FIBRILLATION
     Dosage: 5 MG DAILY
     Route: 048
  7. TYLENOL-500 [Concomitant]
  8. VITAMIN D [Concomitant]
     Dosage: 2000 IU DAILY
     Route: 048
  9. MULTI-VITAMINS [Concomitant]

REACTIONS (10)
  - ARTHRALGIA [None]
  - CARDIAC DISORDER [None]
  - CARDIAC FAILURE CONGESTIVE [None]
  - CHILLS [None]
  - DYSPNOEA [None]
  - HYPOXIA [None]
  - INFLUENZA LIKE ILLNESS [None]
  - LUNG INFILTRATION [None]
  - PNEUMONIA [None]
  - PYREXIA [None]
